FAERS Safety Report 4954033-7 (Version None)
Quarter: 2006Q1

REPORT INFORMATION
  Report Type: 
  Country: None (occurrence: None)
  Receive Date: 20060322
  Receipt Date: 20060310
  Transmission Date: 20060701
  Serious: Yes (Hospitalization, Other)
  Sender: FDA-Public Use
  Company Number: 2006035033

PATIENT
  Sex: Female

DRUGS (2)
  1. METHYLPREDNISOLONE [Suspect]
     Indication: ILL-DEFINED DISORDER
     Dosage: 32 MG (1 IN 1 D), ORAL
     Route: 048
  2. RANITIDINE [Concomitant]

REACTIONS (3)
  - ABDOMINAL ABSCESS [None]
  - DIVERTICULAR PERFORATION [None]
  - PERITONITIS [None]
